FAERS Safety Report 13263443 (Version 1)
Quarter: 2017Q1

REPORT INFORMATION
  Report Type: Spontaneous
  Country: US (occurrence: US)
  Receive Date: 20170223
  Receipt Date: 20170223
  Transmission Date: 20170428
  Serious: No
  Sender: FDA-Public Use
  Company Number: US-BAYER-2017-036152

PATIENT
  Age: 58 Year
  Sex: Female
  Weight: 44.44 kg

DRUGS (5)
  1. OMEPRAZOLE. [Concomitant]
     Active Substance: OMEPRAZOLE
     Dosage: UNK
  2. OMEGA 3 [Concomitant]
     Active Substance: OMEGA-3 FATTY ACIDS
     Dosage: UNK
  3. MIRALAX [Suspect]
     Active Substance: POLYETHYLENE GLYCOL 3350
     Indication: GASTROINTESTINAL DISORDER
     Dosage: 1 UNK, UNK
     Route: 048
     Dates: end: 20170220
  4. BORIC ACID [Concomitant]
     Active Substance: BORIC ACID
     Dosage: UNK
  5. MICROGENICS PROBIOTIC 8 [Concomitant]
     Active Substance: LACTOBACILLUS ACIDOPHILUS
     Dosage: UNK

REACTIONS (7)
  - Dysuria [Unknown]
  - Dehydration [Unknown]
  - Night sweats [Unknown]
  - Vomiting [Unknown]
  - Product use issue [Unknown]
  - Chest discomfort [Unknown]
  - Weight decreased [Unknown]
